FAERS Safety Report 9437254 (Version 1)
Quarter: 2013Q3

REPORT INFORMATION
  Report Type: Report from Study
  Country: BD (occurrence: BD)
  Receive Date: 20130802
  Receipt Date: 20130802
  Transmission Date: 20140515
  Serious: Yes (Death, Hospitalization)
  Sender: FDA-Public Use
  Company Number: PHHY2013BD081219

PATIENT
  Age: 62 Year
  Sex: Female

DRUGS (2)
  1. ACLASTA [Suspect]
     Indication: OSTEOPOROSIS
     Dosage: 5 MG IN 100 ML SOLUTION
     Route: 042
     Dates: start: 20111113
  2. ANTIHYPERTENSIVE DRUGS [Concomitant]
     Indication: BLOOD PRESSURE ABNORMAL
     Dosage: UNK

REACTIONS (4)
  - Cardiac failure [Fatal]
  - Dyspnoea [Fatal]
  - Lung disorder [Unknown]
  - Renal disorder [Recovered/Resolved]
